FAERS Safety Report 5541135-X (Version None)
Quarter: 2007Q4

REPORT INFORMATION
  Report Type: 
  Country: None (occurrence: None)
  Receive Date: 20071209
  Receipt Date: 20061226
  Transmission Date: 20080405
  Serious: No
  Sender: FDA-Public Use
  Company Number: US-AMGEN-KDL204672

PATIENT
  Sex: Female

DRUGS (4)
  1. ENBREL [Suspect]
     Indication: RHEUMATOID ARTHRITIS
     Route: 058
     Dates: start: 20040101
  2. MIRAPEX [Concomitant]
  3. EVISTA [Concomitant]
  4. PROTONIX [Concomitant]

REACTIONS (4)
  - ASTHENIA [None]
  - HYPERSENSITIVITY [None]
  - MUSCULAR WEAKNESS [None]
  - RASH [None]
